FAERS Safety Report 10022937 (Version 1)
Quarter: 2014Q1

REPORT INFORMATION
  Report Type: Spontaneous
  Country: US (occurrence: US)
  Receive Date: 20140319
  Receipt Date: 20140319
  Transmission Date: 20141002
  Serious: Yes (Other)
  Sender: FDA-Public Use
  Company Number: US-BAXTER-2014BAX012355

PATIENT
  Age: 54 Year
  Sex: Male

DRUGS (10)
  1. CYCLOPHOSPHAMIDE FOR INJECTION, USP [Suspect]
     Indication: DIFFUSE LARGE B-CELL LYMPHOMA
     Dosage: 7 DAYS PRIOR TO ADMISSION
     Route: 065
  2. RITUXIMAB [Concomitant]
     Indication: DIFFUSE LARGE B-CELL LYMPHOMA
     Dosage: 7 DAYS PRIOR TO ADMISSION
     Route: 065
  3. DOXORUBICIN [Concomitant]
     Indication: DIFFUSE LARGE B-CELL LYMPHOMA
     Dosage: 7 DAYS PRIOR TO ADMISSION
     Route: 065
  4. VINCRISTINE [Concomitant]
     Indication: DIFFUSE LARGE B-CELL LYMPHOMA
     Dosage: 7 DAYS PRIOR TO ADMISSION
     Route: 065
  5. PREDNISOLONE [Concomitant]
     Indication: DIFFUSE LARGE B-CELL LYMPHOMA
     Dosage: 7 DAYS PRIOR TO ADMISSION
     Route: 065
  6. PEGFILGRASTIM [Concomitant]
     Indication: DIFFUSE LARGE B-CELL LYMPHOMA
     Dosage: 7 DAYS PRIOR TO ADMISSION
     Route: 065
  7. CEFEPIME [Concomitant]
     Indication: FEBRILE NEUTROPENIA
     Dosage: 7 DAYS PRIOR TO ADMISSION
     Route: 065
  8. METRONIDAZOLE [Concomitant]
     Indication: CLOSTRIDIUM DIFFICILE COLITIS
     Dosage: 7 DAYS PRIOR TO ADMISSION
     Route: 042
  9. VANCOMYCIN [Concomitant]
     Indication: CLOSTRIDIUM DIFFICILE COLITIS
     Dosage: 7 DAYS PRIOR TO ADMISSION
     Route: 048
  10. MICAFUNGIN [Concomitant]
     Indication: ANTIFUNGAL TREATMENT
     Dosage: 7 DAYS PRIOR TO ADMISSION
     Route: 065

REACTIONS (3)
  - Febrile neutropenia [Recovered/Resolved]
  - Neutropenic colitis [Recovered/Resolved]
  - Clostridium difficile colitis [Recovered/Resolved]
